FAERS Safety Report 21477186 (Version 1)
Quarter: 2022Q4

REPORT INFORMATION
  Report Type: Spontaneous
  Country: US (occurrence: None)
  Receive Date: 20221018
  Receipt Date: 20221018
  Transmission Date: 20230112
  Serious: Yes (Hospitalization)
  Sender: FDA-Public Use
  Company Number: None

PATIENT
  Sex: Male

DRUGS (12)
  1. AMBRISENTAN [Suspect]
     Active Substance: AMBRISENTAN
     Indication: Pulmonary arterial hypertension
     Route: 048
     Dates: start: 20190920
  2. AMICAR TAB [Concomitant]
  3. AMINOCAPROIC SOL [Concomitant]
  4. CLONAZEPAM [Concomitant]
     Active Substance: CLONAZEPAM
  5. DIAZEPAM TAB [Concomitant]
  6. FERROUS SULF TAB [Concomitant]
  7. FYCOMPA SUS [Concomitant]
  8. OLANZAPINE TAB [Concomitant]
  9. TOPIRAMATE TAB [Concomitant]
  10. VIMPAT SOL [Concomitant]
  11. PYRIDOXINE [Concomitant]
     Active Substance: PYRIDOXINE
  12. VITAMIN B-6 TAB [Concomitant]

REACTIONS (1)
  - General physical health deterioration [None]
